FAERS Safety Report 5283637-X (Version None)
Quarter: 2007Q1

REPORT INFORMATION
  Report Type: 
  Country: None (occurrence: None)
  Receive Date: 20061226
  Receipt Date: 20061005
  Transmission Date: 20070707
  Serious: Yes (Hospitalization)
  Sender: FDA-Public Use
  Company Number: 2006S1000248

PATIENT
  Age: 58 Year
  Sex: Male

DRUGS (8)
  1. SORIATANE [Suspect]
     Indication: PSORIASIS
     Dosage: 25 MG;QD;PO
     Route: 048
     Dates: start: 20060712
  2. DOVONEX [Concomitant]
  3. CLOBETASOL PROPIONATE [Concomitant]
  4. HYDROCHLOROTHIAZIDE [Concomitant]
  5. LISINOPRIL [Concomitant]
  6. ROSIGLITAZONE [Concomitant]
  7. METFORMIN [Concomitant]
  8. SIMVASTATIN [Concomitant]

REACTIONS (2)
  - DIABETIC FOOT INFECTION [None]
  - OSTEOMYELITIS [None]
